FAERS Safety Report 5104561-9 (Version None)
Quarter: 2006Q3

REPORT INFORMATION
  Report Type: 
  Country: None (occurrence: None)
  Receive Date: 20060914
  Receipt Date: 20060905
  Transmission Date: 20061208
  Serious: Yes (Death)
  Sender: FDA-Public Use
  Company Number: US-JNJFOC-20060902252

PATIENT
  Age: 43 Year
  Sex: Female

DRUGS (6)
  1. IBUPROFEN [Suspect]
     Indication: SUICIDE ATTEMPT
     Route: 048
  2. TRIAMTERENE AND HYDROCHLOROTHIAZIDE [Suspect]
     Indication: SUICIDE ATTEMPT
     Route: 048
  3. AMPHETAMINE [Suspect]
     Indication: SUICIDE ATTEMPT
     Route: 048
  4. MORPHINE [Suspect]
     Indication: SUICIDE ATTEMPT
     Route: 048
  5. ALPRAZOLAM [Suspect]
     Indication: SUICIDE ATTEMPT
     Route: 048
  6. METHADONE HCL [Suspect]
     Indication: SUICIDE ATTEMPT
     Route: 048

REACTIONS (3)
  - CARDIO-RESPIRATORY ARREST [None]
  - COMPLETED SUICIDE [None]
  - MULTIPLE DRUG OVERDOSE INTENTIONAL [None]
